FAERS Safety Report 8329122-X (Version None)
Quarter: 2012Q2

REPORT INFORMATION
  Report Type: 
  Country: None (occurrence: None)
  Receive Date: 20120502
  Receipt Date: 20101015
  Transmission Date: 20120825
  Serious: Yes (Other)
  Sender: FDA-Public Use
  Company Number: US-TEVA-2010005436

PATIENT
  Sex: Female
  Weight: 70.824 kg

DRUGS (11)
  1. RISPERIDONE [Concomitant]
     Indication: DEPRESSION
  2. NUVIGIL [Suspect]
     Indication: FATIGUE
     Dosage: 250 MILLIGRAM;
     Route: 048
     Dates: start: 20100808, end: 20100812
  3. NUVIGIL [Suspect]
     Indication: HYPERSOMNIA
  4. QVAR 40 [Concomitant]
  5. PARNATE [Concomitant]
  6. BUSPIRONE HCL [Concomitant]
     Indication: ANXIETY
  7. RANITIDINE [Concomitant]
     Indication: DYSPEPSIA
  8. OPANA ER [Concomitant]
     Indication: BACK PAIN
  9. FORADIL [Concomitant]
     Indication: ASTHMA
  10. HYDROCODONE BITARTRATE AND ACETAMINOPHEN [Concomitant]
     Indication: BACK PAIN
  11. ALPRAZOLAM [Concomitant]
     Indication: ANXIETY

REACTIONS (4)
  - HYPERSOMNIA [None]
  - SUICIDAL IDEATION [None]
  - VOMITING [None]
  - NAUSEA [None]
